FAERS Safety Report 9386763 (Version 2)
Quarter: 2013Q3

REPORT INFORMATION
  Report Type: Spontaneous
  Country: US (occurrence: US)
  Receive Date: 20130708
  Receipt Date: 20130724
  Transmission Date: 20140515
  Serious: No
  Sender: FDA-Public Use
  Company Number: US-PFIZER INC-2013196875

PATIENT
  Age: 69 Year
  Sex: Female
  Weight: 70.75 kg

DRUGS (8)
  1. TOVIAZ [Suspect]
     Indication: URINARY INCONTINENCE
     Dosage: 8 MG, 1X/DAY
     Dates: start: 20130627
  2. DETROL LA [Suspect]
     Indication: URINARY INCONTINENCE
     Dosage: UNK
     Dates: end: 2013
  3. LIPITOR [Suspect]
     Indication: HYPERTENSION
     Dosage: UNK
  4. CIPROFLOXACIN [Suspect]
     Dosage: UNK
  5. ASPIRIN [Suspect]
     Dosage: UNK
  6. CRESTOR [Concomitant]
     Indication: HYPERTENSION
     Dosage: 10 MG, 1X/DAY
  7. DIOVAN [Concomitant]
     Indication: HYPERTENSION
     Dosage: 160 MG, 1X/DAY
  8. NEXIUM [Concomitant]
     Dosage: 40 MG, 2X/DAY

REACTIONS (5)
  - Drug ineffective [Unknown]
  - Local swelling [Unknown]
  - Eye discharge [Recovering/Resolving]
  - Drug hypersensitivity [Unknown]
  - Ocular hyperaemia [Recovering/Resolving]
